FAERS Safety Report 24301728 (Version 3)
Quarter: 2024Q4

REPORT INFORMATION
  Report Type: Spontaneous
  Country: JP (occurrence: JP)
  Receive Date: 20240910
  Receipt Date: 20241016
  Transmission Date: 20250115
  Serious: Yes (Other)
  Sender: UCB
  Company Number: JP-UCBJ-CD202407999UCBPHAPROD

PATIENT
  Age: 3 Year
  Sex: Female

DRUGS (10)
  1. LEVETIRACETAM [Suspect]
     Active Substance: LEVETIRACETAM
     Indication: Epilepsy
     Dosage: UNK
     Route: 048
  2. LEVETIRACETAM [Suspect]
     Active Substance: LEVETIRACETAM
     Indication: Rasmussen encephalitis
  3. LEVETIRACETAM [Suspect]
     Active Substance: LEVETIRACETAM
     Indication: Off label use
  4. LEVETIRACETAM [Suspect]
     Active Substance: LEVETIRACETAM
     Indication: Epilepsy
     Dosage: UNK
     Route: 048
  5. VIMPAT [Suspect]
     Active Substance: LACOSAMIDE
     Indication: Epilepsy
     Dosage: UNK
     Route: 048
  6. VIMPAT [Suspect]
     Active Substance: LACOSAMIDE
     Indication: Rasmussen encephalitis
  7. VIMPAT [Suspect]
     Active Substance: LACOSAMIDE
     Indication: Off label use
  8. CLOBAZAM [Suspect]
     Active Substance: CLOBAZAM
     Indication: Epilepsy
     Dosage: UNK
  9. CLOBAZAM [Suspect]
     Active Substance: CLOBAZAM
     Indication: Rasmussen encephalitis
  10. IMMUNE GLOBULIN NOS [Concomitant]
     Active Substance: IMMUNE GLOBULIN NOS
     Indication: Product used for unknown indication
     Dosage: 400 MILLIGRAM/KILOGRAM/DAY FOR 5 DAYS
     Route: 042

REACTIONS (9)
  - Cerebral atrophy [Unknown]
  - Mental impairment [Unknown]
  - Hemiplegia [Recovering/Resolving]
  - Central nervous system lesion [Unknown]
  - Aphasia [Recovering/Resolving]
  - Visual field defect [Unknown]
  - Hemispherectomy [Unknown]
  - Multiple-drug resistance [Unknown]
  - Off label use [Unknown]
